FAERS Safety Report 24544871 (Version 2)
Quarter: 2024Q4

REPORT INFORMATION
  Report Type: Report from Study
  Country: PK (occurrence: PK)
  Receive Date: 20241024
  Receipt Date: 20241107
  Transmission Date: 20250114
  Serious: Yes (Death)
  Sender: ROCHE
  Company Number: PK-ROCHE-10000110792

PATIENT
  Age: 53 Year
  Sex: Male

DRUGS (4)
  1. RITUXIMAB [Suspect]
     Active Substance: RITUXIMAB
     Indication: Diffuse large B-cell lymphoma
     Route: 042
     Dates: start: 20210312, end: 20241022
  2. RITUXIMAB [Suspect]
     Active Substance: RITUXIMAB
     Route: 042
     Dates: start: 20210312, end: 20241022
  3. RITUXIMAB [Suspect]
     Active Substance: RITUXIMAB
     Route: 042
     Dates: start: 20210312, end: 20241022
  4. RITUXIMAB [Suspect]
     Active Substance: RITUXIMAB
     Route: 042
     Dates: start: 20210312, end: 20241022

REACTIONS (4)
  - Renal failure [Fatal]
  - Weight decreased [Unknown]
  - Pyrexia [Fatal]
  - Hepatic failure [Fatal]

NARRATIVE: CASE EVENT DATE: 20241018
